FAERS Safety Report 17942710 (Version 1)
Quarter: 2020Q2

REPORT INFORMATION
  Report Type: Other
  Country: GB (occurrence: GB)
  Receive Date: 20200625
  Receipt Date: 20200625
  Transmission Date: 20200714
  Serious: Yes (Other)
  Sender: FDA-Public Use
  Company Number: GB-EMCURE PHARMACEUTICALS LTD-2018-EPL-002937

PATIENT
  Age: 53 Year
  Sex: Male

DRUGS (5)
  1. PROPRANOLOL [Suspect]
     Active Substance: PROPRANOLOL HYDROCHLORIDE
     Indication: TACHYCARDIA
     Dosage: 40 MILLIGRAM, TID (120 MG  DAILY)
  2. SERTRALINE HYDROCHLORIDE. [Suspect]
     Active Substance: SERTRALINE HYDROCHLORIDE
     Indication: SCHIZOAFFECTIVE DISORDER
     Dosage: 50 MILLIGRAM, QD (50 MG, AM)
  3. PRIADEL                            /00033702/ [Suspect]
     Active Substance: LITHIUM CARBONATE
     Indication: SCHIZOAFFECTIVE DISORDER
     Dosage: 800 MILLIGRAM, QD
  4. CLOZARIL [Suspect]
     Active Substance: CLOZAPINE
     Indication: SCHIZOAFFECTIVE DISORDER
     Dosage: 300 MILLIGRAM DAILY; 300 MG, AM
     Route: 048
     Dates: start: 20131017
  5. CLOZARIL [Suspect]
     Active Substance: CLOZAPINE
     Dosage: 500 MILLIGRAM DAILY (PM)
     Route: 048
     Dates: start: 20131017

REACTIONS (3)
  - Differential white blood cell count abnormal [Recovering/Resolving]
  - Leukocytosis [Not Recovered/Not Resolved]
  - Neutrophilia [Recovering/Resolving]

NARRATIVE: CASE EVENT DATE: 20170130
